FAERS Safety Report 23590519 (Version 1)
Quarter: 2024Q1

REPORT INFORMATION
  Report Type: Report from Study
  Country: US (occurrence: US)
  Receive Date: 20240304
  Receipt Date: 20240304
  Transmission Date: 20240409
  Serious: Yes (Other)
  Sender: FDA-Public Use
  Company Number: US-ARGENX-2023-ARGX-US004521

PATIENT

DRUGS (1)
  1. VYVGART [Suspect]
     Active Substance: EFGARTIGIMOD ALFA-FCAB
     Indication: Myasthenia gravis
     Dosage: 689 MG, ONCE WEEKLY FOR 4 WEEK, STRENGTH: 400MG/20ML
     Route: 042
     Dates: start: 2023

REACTIONS (5)
  - Choking [Not Recovered/Not Resolved]
  - Myasthenia gravis [Unknown]
  - Dysphagia [Not Recovered/Not Resolved]
  - Diplopia [Unknown]
  - Fatigue [Unknown]
